FAERS Safety Report 23392127 (Version 1)
Quarter: 2024Q1

REPORT INFORMATION
  Report Type: Spontaneous
  Country: US (occurrence: US)
  Receive Date: 20240111
  Receipt Date: 20240111
  Transmission Date: 20240410
  Serious: Yes (Other)
  Sender: FDA-Public Use
  Company Number: US-PFIZER INC-202400002729

PATIENT
  Age: 55 Year
  Sex: Female
  Weight: 70.295 kg

DRUGS (1)
  1. PROPOFOL [Suspect]
     Active Substance: PROPOFOL
     Indication: Anaesthesia
     Dosage: UNK
     Dates: start: 20231027

REACTIONS (7)
  - Dehydration [Recovered/Resolved]
  - Crying [Unknown]
  - Myalgia [Not Recovered/Not Resolved]
  - Eye pain [Unknown]
  - Arthropathy [Unknown]
  - Muscular weakness [Unknown]
  - Hyperlipidaemia [Unknown]

NARRATIVE: CASE EVENT DATE: 20231027
